FAERS Safety Report 6099707-2 (Version None)
Quarter: 2009Q1

REPORT INFORMATION
  Report Type: 
  Country: None (occurrence: None)
  Receive Date: 20090303
  Receipt Date: 20090220
  Transmission Date: 20090719
  Serious: Yes (Other)
  Sender: FDA-Public Use
  Company Number: TW-AMGEN-US336283

PATIENT
  Sex: Male
  Weight: 50 kg

DRUGS (3)
  1. ENBREL [Suspect]
     Indication: RHEUMATOID ARTHRITIS
     Route: 058
     Dates: start: 20060811, end: 20090203
  2. HYDROXYCHLOROQUINE SULFATE [Concomitant]
     Indication: RHEUMATOID ARTHRITIS
     Dosage: 200MG/400MG, BIW
     Route: 048
     Dates: start: 20060612, end: 20080623
  3. METHOTREXATE [Concomitant]
     Indication: RHEUMATOID ARTHRITIS
     Dosage: 2.5MG/7.5MG, TIW
     Route: 048
     Dates: start: 20060612

REACTIONS (1)
  - PULMONARY TUBERCULOSIS [None]
